FAERS Safety Report 15553901 (Version 1)
Quarter: 2018Q4

REPORT INFORMATION
  Report Type: Spontaneous
  Country: JP (occurrence: JP)
  Receive Date: 20181026
  Receipt Date: 20181026
  Transmission Date: 20190205
  Serious: Yes (Life-Threatening, Other)
  Sender: FDA-Public Use
  Company Number: JP-TAKEDA-2018TJP025153

PATIENT
  Age: 77 Year
  Sex: Male

DRUGS (3)
  1. ACTOS [Suspect]
     Active Substance: PIOGLITAZONE HYDROCHLORIDE
     Indication: DIABETES MELLITUS
     Dosage: 15 MG, QD
     Route: 048
     Dates: start: 20091217, end: 201801
  2. SEIBULE [Concomitant]
     Active Substance: MIGLITOL
     Dosage: UNK, TID
     Route: 065
     Dates: start: 20091217
  3. ONGLYZA [Concomitant]
     Active Substance: SAXAGLIPTIN HYDROCHLORIDE
     Dosage: 5 MG, QD
     Route: 065
     Dates: start: 201603

REACTIONS (2)
  - Metastatic carcinoma of the bladder [Not Recovered/Not Resolved]
  - Small intestine carcinoma [Unknown]

NARRATIVE: CASE EVENT DATE: 201710
